FAERS Safety Report 9826923 (Version 1)
Quarter: 2014Q1

REPORT INFORMATION
  Report Type: Spontaneous
  Country: US (occurrence: US)
  Receive Date: 20140117
  Receipt Date: 20140117
  Transmission Date: 20141002
  Serious: No
  Sender: FDA-Public Use
  Company Number: US-GLAXOSMITHKLINE-A1017884A

PATIENT
  Age: 35 Year
  Sex: Female

DRUGS (5)
  1. PROMACTA [Suspect]
     Indication: IMMUNE THROMBOCYTOPENIC PURPURA
     Dosage: 25MG ALTERNATE DAYS
     Route: 048
     Dates: start: 201003
  2. NEXIUM [Concomitant]
  3. HYDROCHLOROTHIAZIDE [Concomitant]
  4. TYLENOL [Concomitant]
  5. UNKNOWN [Concomitant]

REACTIONS (1)
  - Exposure during pregnancy [Unknown]
